FAERS Safety Report 6511233-2 (Version None)
Quarter: 2009Q4

REPORT INFORMATION
  Report Type: 
  Country: None (occurrence: None)
  Receive Date: 20091222
  Receipt Date: 20090401
  Transmission Date: 20100525
  Serious: No
  Sender: FDA-Public Use
  Company Number: US-ASTRAZENECA-2009UW05635

PATIENT
  Age: 572 Month
  Sex: Male
  Weight: 99.8 kg

DRUGS (3)
  1. CRESTOR [Suspect]
     Indication: BLOOD CHOLESTEROL
     Dosage: 5-10 MG, DAILY
     Route: 048
     Dates: start: 20080301
  2. ONE A DAY VITAMIN WITH IRON [Concomitant]
  3. COD LIVER OIL [Concomitant]

REACTIONS (2)
  - HYPERTHYROIDISM [None]
  - SKELETAL MUSCLE ENZYMES [None]
